FAERS Safety Report 5196406-6 (Version None)
Quarter: 2006Q4

REPORT INFORMATION
  Report Type: 
  Country: None (occurrence: None)
  Receive Date: 20061222
  Receipt Date: 20061211
  Transmission Date: 20070319
  Serious: Yes (Hospitalization)
  Sender: FDA-Public Use
  Company Number: 2006002321

PATIENT
  Age: 73 Year
  Sex: Female

DRUGS (4)
  1. ERLOTINIB (TABLET) [Suspect]
     Indication: NON-SMALL CELL LUNG CANCER
     Dosage: 100 MG (QD) ORAL
     Route: 048
     Dates: start: 20050707
  2. CETIRIZINE HCL [Concomitant]
  3. ATARAX [Concomitant]
  4. VOLTAREN [Concomitant]

REACTIONS (1)
  - ARTHRITIS [None]
